FAERS Safety Report 8905745 (Version 1)
Quarter: 2012Q4

REPORT INFORMATION
  Report Type: 
  Country: US (occurrence: US)
  Receive Date: 20121109
  Receipt Date: 20121109
  Transmission Date: 20130627
  Serious: Yes (Other)
  Sender: FDA-Public Use
  Company Number: US-BAXTER-2012BAX023559

PATIENT
  Age: 62 Year
  Sex: Female

DRUGS (3)
  1. CYCLOPHOSPHAMIDE FOR INJECTION, USP [Suspect]
     Indication: BREAST CANCER
     Route: 042
     Dates: start: 200909
  2. DOCETAXEL [Suspect]
     Indication: BREAST CANCER
     Dates: start: 200909
  3. MESNA [Concomitant]
     Indication: BREAST CANCER

REACTIONS (2)
  - Cystitis haemorrhagic [Recovered/Resolved]
  - Vaginal haemorrhage [Recovered/Resolved]
